FAERS Safety Report 9238638 (Version 3)
Quarter: 2014Q2

REPORT INFORMATION
  Report Type: Spontaneous
  Country: US (occurrence: None)
  Receive Date: 20130416
  Receipt Date: 20140523
  Transmission Date: 20141212
  Serious: Yes (Other)
  Sender: FDA-Public Use
  Company Number: 2012-003761

PATIENT
  Age: 62 Year
  Sex: Female

DRUGS (17)
  1. ACTONEL [Suspect]
     Indication: OSTEOPOROSIS
     Route: 048
     Dates: start: 20031027, end: 20070323
  2. ACTONEL [Suspect]
     Indication: OSTEOPOROSIS PROPHYLAXIS
     Route: 048
     Dates: start: 20031027, end: 20070323
  3. ACTONEL [Suspect]
     Indication: OSTEOPOROSIS PROPHYLAXIS
     Route: 048
     Dates: start: 20031027, end: 20070323
  4. FOSAMAX [Suspect]
     Indication: OSTEOPOROSIS
     Route: 048
     Dates: start: 20070323
  5. FOSAMAX [Suspect]
     Indication: OSTEOPOROSIS PROPHYLAXIS
     Route: 048
     Dates: start: 20070323
  6. ALENDRONATE SODIUM [Suspect]
     Indication: OSTEOPOROSIS
     Route: 048
     Dates: start: 200904, end: 20120228
  7. ALENDRONATE SODIUM [Suspect]
     Indication: OSTEOPOROSIS PROPHYLAXIS
     Route: 048
     Dates: start: 200904, end: 20120228
  8. LOPRESSOR [Concomitant]
  9. HYDROCHLOROTHIAZIDE (HYDROCHLOROTHIAZIDE) [Concomitant]
  10. BENICAR (OLMESARTAN MEDOXOMIL) [Concomitant]
  11. SYNTHROID (LEVOTHYROXINE SODIUM) [Concomitant]
  12. XANAX (ALPRAZOLAM) [Concomitant]
  13. ANTIVERT?/00072802/ (MECLOZINE HYDROCHLORIDE) [Concomitant]
  14. VESICARE (SOLIFENACIN SUCCINATE) [Concomitant]
  15. CALCIUM (CALCIUM) [Concomitant]
  16. VITAMIN D?/00318501/ (COLECALCIFEROL) [Concomitant]
  17. CALCIFEROL?/00107901/ (ERGOCALCIFEROL) [Concomitant]

REACTIONS (11)
  - Atypical femur fracture [None]
  - Pathological fracture [None]
  - Pain in extremity [None]
  - Joint hyperextension [None]
  - Gait disturbance [None]
  - Stress fracture [None]
  - Bone disorder [None]
  - Low turnover osteopathy [None]
  - Bursitis [None]
  - Bone scan abnormal [None]
  - Arthralgia [None]
